FAERS Safety Report 12565049 (Version 2)
Quarter: 2016Q3

REPORT INFORMATION
  Report Type: Spontaneous
  Country: ES (occurrence: ES)
  Receive Date: 20160718
  Receipt Date: 20160727
  Transmission Date: 20161109
  Serious: Yes (Hospitalization)
  Sender: FDA-Public Use
  Company Number: ES-AUROBINDO-AUR-APL-2016-08962

PATIENT
  Age: 77 Year
  Sex: Female

DRUGS (8)
  1. PHENELZINE [Interacting]
     Active Substance: PHENELZINE
     Indication: BIPOLAR DISORDER
     Route: 065
  2. DULOXETINE. [Interacting]
     Active Substance: DULOXETINE
     Indication: DEPRESSION
  3. PHENELZINE [Interacting]
     Active Substance: PHENELZINE
     Indication: DEPRESSION
  4. OLANZAPINE. [Interacting]
     Active Substance: OLANZAPINE
     Indication: DEPRESSION
  5. OLANZAPINE. [Interacting]
     Active Substance: OLANZAPINE
     Indication: BIPOLAR DISORDER
     Dosage: UNK
     Route: 065
  6. DULOXETINE. [Suspect]
     Active Substance: DULOXETINE
     Indication: URINARY TRACT INFECTION
     Dosage: UNK
     Route: 065
  7. DULOXETINE. [Interacting]
     Active Substance: DULOXETINE
     Indication: BIPOLAR DISORDER
  8. PHENELZINE [Interacting]
     Active Substance: PHENELZINE
     Indication: DEPRESSION

REACTIONS (6)
  - Serotonin syndrome [Recovered/Resolved]
  - Muscle rigidity [Recovered/Resolved]
  - Decerebration [Recovered/Resolved]
  - Drug interaction [Recovered/Resolved]
  - Sedation [Recovered/Resolved]
  - Depressed level of consciousness [Recovered/Resolved]
